FAERS Safety Report 5851390-4 (Version None)
Quarter: 2008Q3

REPORT INFORMATION
  Report Type: 
  Country: None (occurrence: None)
  Receive Date: 20080820
  Receipt Date: 20080815
  Transmission Date: 20090109
  Serious: Yes (Hospitalization)
  Sender: FDA-Public Use
  Company Number: JP-AVENTIS-200812619JP

PATIENT

DRUGS (2)
  1. LANTUS [Suspect]
     Route: 058
  2. UNKNOWN DRUG [Concomitant]

REACTIONS (1)
  - HEPATIC FUNCTION ABNORMAL [None]
